FAERS Safety Report 17425234 (Version 1)
Quarter: 2020Q1

REPORT INFORMATION
  Report Type: Spontaneous
  Country: GB (occurrence: GB)
  Receive Date: 20200218
  Receipt Date: 20200218
  Transmission Date: 20200409
  Serious: Yes (Hospitalization, Other)
  Sender: FDA-Public Use
  Company Number: GB-LUPIN PHARMACEUTICALS INC.-2020-00697

PATIENT
  Age: 83 Year
  Sex: Female

DRUGS (11)
  1. TERBUTALINE SULPHATE [Interacting]
     Active Substance: TERBUTALINE SULFATE
     Indication: ASTHMA
     Dosage: 500 MICROGRAM, PRN
  2. FUROSEMIDE. [Interacting]
     Active Substance: FUROSEMIDE
     Indication: DIURETIC THERAPY
     Dosage: UNK
     Route: 065
  3. DOXYCYCLINE. [Suspect]
     Active Substance: DOXYCYCLINE
     Indication: LOWER RESPIRATORY TRACT INFECTION
     Dosage: 200 MILLIGRAM
     Route: 048
  4. SALBUTAMOL [Interacting]
     Active Substance: ALBUTEROL
     Dosage: UNK, FREQUENCY INCREASED
  5. PREDNISOLONE. [Interacting]
     Active Substance: PREDNISOLONE
     Indication: ASTHMA
     Dosage: 30 MILLIGRAM
     Route: 048
  6. MIRTAZAPINE. [Interacting]
     Active Substance: MIRTAZAPINE
     Indication: DEPRESSION
     Dosage: UNK
     Route: 065
  7. FORMOTEROL FUMARATE [Interacting]
     Active Substance: FORMOTEROL FUMARATE
     Indication: ASTHMA
     Dosage: 12 MICROGRAM, BID
  8. MAGNESIUM SULPHATE [MAGNESIUM SULFATE] [Interacting]
     Active Substance: MAGNESIUM SULFATE
     Indication: ASTHMA
     Dosage: 2 GRAM
     Route: 042
  9. AMINOPHYLLINE. [Interacting]
     Active Substance: AMINOPHYLLINE
     Indication: ASTHMA
     Dosage: UNK, LOADING DOSE
     Route: 042
  10. SALBUTAMOL [Interacting]
     Active Substance: ALBUTEROL
     Indication: ASTHMA
     Dosage: 5 MILLIGRAM
  11. SYMBICORT [Interacting]
     Active Substance: BUDESONIDE\FORMOTEROL FUMARATE DIHYDRATE
     Indication: ASTHMA
     Dosage: 1 DOSAGE FORM, BID, 400/ 12 MCG/MCG

REACTIONS (3)
  - Lactic acidosis [Recovered/Resolved]
  - Drug interaction [Unknown]
  - Drug-disease interaction [Unknown]
